FAERS Safety Report 5284320-7 (Version None)
Quarter: 2007Q1

REPORT INFORMATION
  Report Type: 
  Country: None (occurrence: None)
  Receive Date: 20070327
  Receipt Date: 20070316
  Transmission Date: 20070707
  Serious: Yes (Disabling)
  Sender: FDA-Public Use
  Company Number: 6031097

PATIENT
  Age: 55 Year
  Sex: Male

DRUGS (6)
  1. CARDENSIEL  1.25 MG (1,25 MG, TABLET) (BISOPROLOL FUMARATE) [Suspect]
     Indication: ISCHAEMIC CARDIOMYOPATHY
     Dosage: 1,25 MG (1,25 MG, 1 D), ORAL
     Route: 048
  2. IKOREL (TABLET) (NICORANDIL) [Concomitant]
  3. COVERSYL (TABLET) (PERINDOPRIL) [Concomitant]
  4. ASPEGIC 1000 [Concomitant]
  5. ELISOR (TABLET) (PRAVASTATIN SODIUM) [Concomitant]
  6. OGAST (GASTRO-RESISTANT GRANULES) (LANSOPRAZOLE) [Concomitant]

REACTIONS (2)
  - PAIN IN EXTREMITY [None]
  - WALKING DISABILITY [None]
